FAERS Safety Report 5646017-0 (Version None)
Quarter: 2008Q1

REPORT INFORMATION
  Report Type: 
  Country: None (occurrence: None)
  Receive Date: 20080131
  Receipt Date: 20071210
  Transmission Date: 20080703
  Serious: Yes (Hospitalization)
  Sender: FDA-Public Use
  Company Number: 163-21880-07120580

PATIENT
  Age: 59 Year
  Sex: Female

DRUGS (13)
  1. REVLIMID [Suspect]
     Indication: MULTIPLE MYELOMA
     Dosage: 25 MG, DAILY 21/28 DAYS, ORAL ; 25 MG, DAILY 21/28 DAYS, ORAL
     Route: 048
     Dates: start: 20071020, end: 20071029
  2. REVLIMID [Suspect]
     Indication: MULTIPLE MYELOMA
     Dosage: 25 MG, DAILY 21/28 DAYS, ORAL ; 25 MG, DAILY 21/28 DAYS, ORAL
     Route: 048
     Dates: start: 20071101
  3. ASPIRIN [Concomitant]
  4. OMEPRAZOLE [Concomitant]
  5. NOVOLIN N [Concomitant]
  6. LANTUS [Concomitant]
  7. GLYBURIDE [Concomitant]
  8. FUROSEMIDE [Concomitant]
  9. FELODIPINE [Concomitant]
  10. K-TAB [Concomitant]
  11. COMBIVENT [Concomitant]
  12. COZAAR [Concomitant]
  13. SIMVASTATIN [Concomitant]

REACTIONS (1)
  - PULMONARY EMBOLISM [None]
